FAERS Safety Report 18756365 (Version 1)
Quarter: 2021Q1

REPORT INFORMATION
  Report Type: Spontaneous
  Country: DE (occurrence: DE)
  Receive Date: 20210119
  Receipt Date: 20210119
  Transmission Date: 20210419
  Serious: Yes (Hospitalization)
  Sender: FDA-Public Use
  Company Number: DE-MYLANLABS-2021M1001946

PATIENT
  Age: 80 Year
  Sex: Female
  Weight: 78 kg

DRUGS (7)
  1. IBUPROFEN. [Suspect]
     Active Substance: IBUPROFEN
     Indication: PRODUCT USED FOR UNKNOWN INDICATION
     Dosage: 400 MG, 1?1?1?0
  2. RAMIPRIL. [Concomitant]
     Active Substance: RAMIPRIL
     Dosage: 5 MG, 1?0?0?0
  3. FEBUXOSTAT. [Concomitant]
     Active Substance: FEBUXOSTAT
     Dosage: 80 MG, 1?0?0?0
  4. DILTIAZEM. [Concomitant]
     Active Substance: DILTIAZEM
     Dosage: 60 MG, 1?0?0?0
  5. PHENPROCOUMON [Suspect]
     Active Substance: PHENPROCOUMON
     Indication: PRODUCT USED FOR UNKNOWN INDICATION
     Dosage: 3 MG, ACCORDING TO INR
  6. TORASEMID [Concomitant]
     Active Substance: TORSEMIDE
     Dosage: 10 MG, 1?1?0?0
  7. DIGITOXIN [Concomitant]
     Active Substance: DIGITOXIN
     Dosage: 0.07 MG, 1?0?0?0

REACTIONS (3)
  - Dyspnoea [Unknown]
  - Painful respiration [Unknown]
  - Haemoptysis [Unknown]
